FAERS Safety Report 17273524 (Version 3)
Quarter: 2020Q1

REPORT INFORMATION
  Report Type: Spontaneous
  Country: JP (occurrence: JP)
  Receive Date: 20200115
  Receipt Date: 20200227
  Transmission Date: 20200409
  Serious: Yes (Hospitalization, Other)
  Sender: FDA-Public Use
  Company Number: JP-GILEAD-2019-0442597

PATIENT
  Age: 78 Year
  Sex: Female
  Weight: 59 kg

DRUGS (18)
  1. EPCLUSA [Suspect]
     Active Substance: SOFOSBUVIR\VELPATASVIR
     Indication: HEPATITIS C
     Dosage: 1 DOSAGE FORM, QD, IN THE MORNING
     Route: 048
     Dates: start: 20191107, end: 20200131
  2. DIART [Suspect]
     Active Substance: AZOSEMIDE
     Indication: ASCITES
     Dosage: 0.5 DOSAGE FORM, QD
     Route: 048
     Dates: start: 20191114
  3. AMINOLEBAN [Concomitant]
     Active Substance: AMINO ACIDS, SOURCE UNSPECIFIED
     Indication: HEPATIC CIRRHOSIS
     Dosage: 1 DOSAGE FORM, QD
  4. SAMSCA [Concomitant]
     Active Substance: TOLVAPTAN
     Indication: HEPATIC CIRRHOSIS
     Dosage: 1 DOSAGE FORM, QD
  5. EPCLUSA [Suspect]
     Active Substance: SOFOSBUVIR\VELPATASVIR
     Indication: HEPATIC CIRRHOSIS
  6. AMINOLEBAN [Concomitant]
     Active Substance: AMINO ACIDS, SOURCE UNSPECIFIED
     Indication: HEPATIC ENCEPHALOPATHY
  7. HEPAACT [Concomitant]
     Indication: HEPATIC CIRRHOSIS
     Dosage: 1 DOSAGE FORM, BID
     Route: 048
  8. NATRIX [Concomitant]
     Active Substance: INDAPAMIDE
     Indication: HEPATIC CIRRHOSIS
     Dosage: 0.5 DOSAGE FORM, QD
  9. SLOW-K [Concomitant]
     Active Substance: POTASSIUM CHLORIDE
     Indication: HEPATIC CIRRHOSIS
     Dosage: 2 DOSAGE FORM, QD
     Dates: start: 20191205
  10. POLAPREZINC [Concomitant]
     Active Substance: POLAPREZINC
     Indication: HEPATIC CIRRHOSIS
     Dosage: 0.5 DOSAGE FORM, BID
  11. VITAMEDIN [BENFOTIAMINE;CYANOCOBALAMIN;PYRIDOXINE HYDROCHLORIDE] [Concomitant]
     Indication: HEPATIC CIRRHOSIS
     Dosage: 1 DOSAGE FORM, TID
  12. DIART [Suspect]
     Active Substance: AZOSEMIDE
     Indication: HEPATIC CIRRHOSIS
     Dosage: 0.5 DOSAGE FORM, QD
     Route: 048
     Dates: start: 20191129
  13. ALBUMIN [Suspect]
     Active Substance: ALBUMIN HUMAN
     Indication: ASCITES
     Dosage: UNK
     Route: 065
     Dates: start: 20191009, end: 20191012
  14. PORTOLAC [Concomitant]
     Active Substance: LACTITOL
     Indication: HEPATIC CIRRHOSIS
     Dosage: 1 DOSAGE FORM, TID
  15. ALBUMIN [Suspect]
     Active Substance: ALBUMIN HUMAN
     Dosage: UNK
     Route: 065
     Dates: start: 20191212
  16. URSO [Concomitant]
     Active Substance: URSODIOL
     Indication: HEPATIC CIRRHOSIS
     Dosage: 2 DOSAGE FORM, TID
  17. ALBUMIN [Suspect]
     Active Substance: ALBUMIN HUMAN
     Indication: HEPATORENAL SYNDROME
     Dosage: UNK
     Route: 065
     Dates: start: 20191107
  18. KANAMYCIN [Concomitant]
     Active Substance: KANAMYCIN A SULFATE
     Indication: HEPATIC CIRRHOSIS
     Dosage: 2 DOSAGE FORM, TID

REACTIONS (4)
  - Hepatic encephalopathy [Recovered/Resolved]
  - Dehydration [Recovering/Resolving]
  - Hepatic encephalopathy [Recovered/Resolved]
  - Ascites [Recovering/Resolving]

NARRATIVE: CASE EVENT DATE: 20191129
